FAERS Safety Report 8196323-3 (Version None)
Quarter: 2012Q1

REPORT INFORMATION
  Report Type: 
  Country: None (occurrence: None)
  Receive Date: 20120309
  Receipt Date: 20120306
  Transmission Date: 20120608
  Serious: Yes (Hospitalization)
  Sender: FDA-Public Use
  Company Number: US-PFIZER INC-2012060196

PATIENT
  Sex: Male
  Weight: 83.5 kg

DRUGS (3)
  1. JANUVIA [Concomitant]
     Indication: GLUCOSE TOLERANCE IMPAIRED
     Dosage: 50 MG, DAILY
  2. NADOLOL [Concomitant]
     Indication: HYPERTENSION
     Dosage: ONE AND A HALF TABLET, DAILY
     Route: 048
  3. SUTENT [Suspect]
     Indication: RENAL CELL CARCINOMA STAGE IV
     Dosage: 12.5 MG, 3X/DAY, 4 WKS ON/2 WKS OFF

REACTIONS (1)
  - INTRAVENTRICULAR HAEMORRHAGE [None]
